FAERS Safety Report 4474735-9 (Version None)
Quarter: 2004Q4

REPORT INFORMATION
  Report Type: 
  Country: None (occurrence: None)
  Receive Date: 20041012
  Receipt Date: 20040927
  Transmission Date: 20050328
  Serious: Yes (Hospitalization)
  Sender: FDA-Public Use
  Company Number: 2004230126FR

PATIENT
  Age: 8 Year
  Sex: Male
  Weight: 22 kg

DRUGS (4)
  1. DELTASONE [Suspect]
     Indication: UVEITIS
     Dosage: 25 MG, BID, ORAL
     Route: 048
  2. SOLU-MEDROL [Suspect]
     Indication: UVEITIS
     Dosage: SE IMAGE
     Route: 042
     Dates: start: 20040527
  3. SALBUTAMOL SULFATE (SALBUTAMOL SULFATE) [Concomitant]
  4. BECLOMETHASONE DIPROPIONATE [Concomitant]

REACTIONS (18)
  - ARTHRALGIA [None]
  - ARTHRITIS INFECTIVE [None]
  - ASTHENIA [None]
  - BETA HAEMOLYTIC STREPTOCOCCAL INFECTION [None]
  - BONE DISORDER [None]
  - CARDIAC DISORDER [None]
  - CONDITION AGGRAVATED [None]
  - DRUG HYPERSENSITIVITY [None]
  - GRANULOMA [None]
  - LYMPHOPENIA [None]
  - MEDICATION ERROR [None]
  - OEDEMA [None]
  - OSTEOMYELITIS [None]
  - PAIN [None]
  - PYREXIA [None]
  - SARCOIDOSIS [None]
  - TUBERCULOSIS [None]
  - UVEITIS [None]
